FAERS Safety Report 16738024 (Version 5)
Quarter: 2020Q2

REPORT INFORMATION
  Report Type: Report from Study
  Country: BR (occurrence: BR)
  Receive Date: 20190824
  Receipt Date: 20200528
  Transmission Date: 20200713
  Serious: Yes (Life-Threatening, Hospitalization, Other)
  Sender: FDA-Public Use
  Company Number: PHHY2019BR151021

PATIENT
  Age: 63 Year
  Sex: Female
  Weight: 65 kg

DRUGS (12)
  1. KISQALI [Suspect]
     Active Substance: RIBOCICLIB
     Dosage: UNK
     Route: 065
     Dates: start: 20190630, end: 20190721
  2. KISQALI [Suspect]
     Active Substance: RIBOCICLIB
     Dosage: 2 DF, QD
     Route: 065
     Dates: start: 20190630, end: 20190720
  3. KISQALI [Suspect]
     Active Substance: RIBOCICLIB
     Dosage: 200 MG, QD
     Route: 065
  4. KISQALI [Suspect]
     Active Substance: RIBOCICLIB
     Dosage: 1 DF, QD
     Route: 065
     Dates: start: 20190829
  5. FEMARA [Suspect]
     Active Substance: LETROZOLE
     Indication: BREAST CANCER METASTATIC
     Dosage: UNK
     Route: 065
  6. KISQALI [Suspect]
     Active Substance: RIBOCICLIB
     Indication: BREAST CANCER METASTATIC
     Dosage: 1 DF, QD
     Route: 065
     Dates: start: 20190507
  7. KISQALI [Suspect]
     Active Substance: RIBOCICLIB
     Dosage: 200 MG, QD
     Route: 065
  8. KISQALI [Suspect]
     Active Substance: RIBOCICLIB
     Dosage: 600 MG, QD
     Route: 048
     Dates: start: 201906
  9. VERAPAMIL [Suspect]
     Active Substance: VERAPAMIL HYDROCHLORIDE
     Indication: PRODUCT USED FOR UNKNOWN INDICATION
     Route: 065
  10. KISQALI [Suspect]
     Active Substance: RIBOCICLIB
     Dosage: 3 DF, QD
     Route: 065
     Dates: start: 20190527, end: 20190616
  11. FEMARA [Suspect]
     Active Substance: LETROZOLE
     Dosage: UNK
     Route: 065
     Dates: start: 20190507
  12. TAMOXIFEN [Suspect]
     Active Substance: TAMOXIFEN
     Indication: PRODUCT USED FOR UNKNOWN INDICATION
     Dosage: UNK
     Route: 065
     Dates: start: 2000

REACTIONS (85)
  - Feeling abnormal [Not Recovered/Not Resolved]
  - Pleural effusion [Unknown]
  - Choking [Not Recovered/Not Resolved]
  - Arrhythmia [Unknown]
  - Metastases to spine [Unknown]
  - Breast cancer recurrent [Unknown]
  - Pubic pain [Unknown]
  - Muscle injury [Unknown]
  - Hypoaesthesia [Unknown]
  - Movement disorder [Unknown]
  - Vertigo [Unknown]
  - Neoplasm malignant [Not Recovered/Not Resolved]
  - Drug-induced liver injury [Unknown]
  - Peripheral swelling [Not Recovered/Not Resolved]
  - Blood test abnormal [Unknown]
  - Nail disorder [Unknown]
  - Pain in extremity [Unknown]
  - Head discomfort [Unknown]
  - Fatigue [Not Recovered/Not Resolved]
  - Chest discomfort [Unknown]
  - Aphasia [Recovered/Resolved]
  - Gingival bleeding [Not Recovered/Not Resolved]
  - Hyperhidrosis [Not Recovered/Not Resolved]
  - Metastases to pleura [Not Recovered/Not Resolved]
  - Pain [Not Recovered/Not Resolved]
  - Myocardial infarction [Not Recovered/Not Resolved]
  - Speech disorder [Unknown]
  - Overweight [Unknown]
  - Pruritus [Unknown]
  - Dysphagia [Unknown]
  - Oral herpes [Not Recovered/Not Resolved]
  - Catarrh [Unknown]
  - Memory impairment [Unknown]
  - Hypertension [Unknown]
  - Musculoskeletal pain [Unknown]
  - Blister [Unknown]
  - Alopecia [Unknown]
  - Medication error [Unknown]
  - Urine abnormality [Unknown]
  - Glossodynia [Not Recovered/Not Resolved]
  - Paraesthesia [Not Recovered/Not Resolved]
  - Feeling hot [Not Recovered/Not Resolved]
  - Abdominal pain upper [Unknown]
  - Pallor [Not Recovered/Not Resolved]
  - Skin exfoliation [Unknown]
  - Skin wrinkling [Unknown]
  - Influenza [Not Recovered/Not Resolved]
  - Pleuritic pain [Unknown]
  - Gait disturbance [Unknown]
  - Oropharyngeal pain [Unknown]
  - Off label use [Unknown]
  - Burning sensation [Unknown]
  - Dyspepsia [Unknown]
  - Transaminases increased [Recovered/Resolved]
  - Abdominal pain [Unknown]
  - Nausea [Not Recovered/Not Resolved]
  - Infection [Recovered/Resolved]
  - Chest pain [Not Recovered/Not Resolved]
  - Cough [Not Recovered/Not Resolved]
  - Headache [Not Recovered/Not Resolved]
  - Sleep disorder [Not Recovered/Not Resolved]
  - Device failure [Unknown]
  - Dry skin [Unknown]
  - Rash papular [Unknown]
  - Dysphonia [Unknown]
  - Liver function test increased [Unknown]
  - Arthralgia [Not Recovered/Not Resolved]
  - Tachycardia [Unknown]
  - Lung disorder [Unknown]
  - Pelvic pain [Unknown]
  - Decreased immune responsiveness [Unknown]
  - Abdominal distension [Unknown]
  - Malaise [Not Recovered/Not Resolved]
  - Dyspnoea [Not Recovered/Not Resolved]
  - Urinary incontinence [Unknown]
  - Liver disorder [Unknown]
  - Muscle spasms [Unknown]
  - Gingival pain [Not Recovered/Not Resolved]
  - Dizziness [Not Recovered/Not Resolved]
  - Asthenia [Not Recovered/Not Resolved]
  - Bone pain [Unknown]
  - Pulmonary pain [Unknown]
  - Decreased appetite [Recovered/Resolved]
  - Pain of skin [Unknown]
  - Drug ineffective [Unknown]

NARRATIVE: CASE EVENT DATE: 201904
